FAERS Safety Report 12115232 (Version 1)
Quarter: 2016Q1

REPORT INFORMATION
  Report Type: Spontaneous
  Country: US (occurrence: US)
  Receive Date: 20160225
  Receipt Date: 20160225
  Transmission Date: 20160526
  Serious: Yes (Hospitalization)
  Sender: FDA-Public Use
  Company Number: US-TARO-2016TAR00160

PATIENT
  Age: 62 Year
  Sex: Female
  Weight: 126.98 kg

DRUGS (6)
  1. GUAIFENESIN. [Concomitant]
     Active Substance: GUAIFENESIN
  2. CLOTRIMAZOLE/BETAMETHASONE DIPROPIONATE CREAM USP 1%/0.05% [Suspect]
     Active Substance: BETAMETHASONE DIPROPIONATE\CLOTRIMAZOLE
     Indication: FUNGAL SKIN INFECTION
     Dosage: UNK UNK, AS NEEDED
     Route: 061
     Dates: start: 2001, end: 20160214
  3. SYSTANE (HYPROMELLOSE 2910 (4000 MPA.S)) [Concomitant]
     Active Substance: HYPROMELLOSE 2910 (4000 MPA.S)
  4. SEREVENT DISKUS [Concomitant]
     Active Substance: SALMETEROL XINAFOATE
  5. PULMICORT TURBUHALER [Concomitant]
     Active Substance: BUDESONIDE
  6. ALBUTEROL NEBULIZER [Concomitant]
     Active Substance: ALBUTEROL

REACTIONS (7)
  - Feeling abnormal [Recovered/Resolved]
  - Swelling face [Recovering/Resolving]
  - Incorrect dose administered [Recovered/Resolved]
  - Drug interaction [Recovered/Resolved]
  - Chest pain [Recovered/Resolved]
  - Heart rate irregular [Recovered/Resolved]
  - Erythema [Recovering/Resolving]

NARRATIVE: CASE EVENT DATE: 20160214
